FAERS Safety Report 24641382 (Version 2)
Quarter: 2025Q1

REPORT INFORMATION
  Report Type: Report from Study
  Country: CA (occurrence: CA)
  Receive Date: 20241120
  Receipt Date: 20250221
  Transmission Date: 20250408
  Serious: Yes (Hospitalization)
  Sender: SAMSUNG BIOEPIS
  Company Number: CA-SAMSUNG BIOEPIS-SB-2024-34881

PATIENT
  Age: 52 Year
  Sex: Female

DRUGS (9)
  1. RENFLEXIS [Suspect]
     Active Substance: INFLIXIMAB-ABDA
     Indication: Ankylosing spondylitis
     Route: 042
     Dates: start: 20210303, end: 20220120
  2. RENFLEXIS [Suspect]
     Active Substance: INFLIXIMAB-ABDA
     Route: 042
     Dates: start: 20220316, end: 20220316
  3. RENFLEXIS [Suspect]
     Active Substance: INFLIXIMAB-ABDA
     Route: 042
     Dates: start: 20220512, end: 20230425
  4. RENFLEXIS [Suspect]
     Active Substance: INFLIXIMAB-ABDA
     Route: 042
     Dates: start: 20230607
  5. RENFLEXIS [Suspect]
     Active Substance: INFLIXIMAB-ABDA
     Dates: start: 20240903
  6. RENFLEXIS [Suspect]
     Active Substance: INFLIXIMAB-ABDA
     Dates: start: 20241112
  7. RENFLEXIS [Suspect]
     Active Substance: INFLIXIMAB-ABDA
     Route: 042
     Dates: start: 20230607
  8. RENFLEXIS [Suspect]
     Active Substance: INFLIXIMAB-ABDA
     Dates: start: 20241224
  9. RENFLEXIS [Suspect]
     Active Substance: INFLIXIMAB-ABDA
     Dates: start: 20250213

REACTIONS (2)
  - Pancreatitis [Recovering/Resolving]
  - Hernia [Unknown]

NARRATIVE: CASE EVENT DATE: 20241022
